FAERS Safety Report 8514853-9 (Version None)
Quarter: 2012Q3

REPORT INFORMATION
  Report Type: 
  Country: None (occurrence: None)
  Receive Date: 20120717
  Receipt Date: 20120710
  Transmission Date: 20120928
  Serious: Yes (Other)
  Sender: FDA-Public Use
  Company Number: US-ROCHE-1087035

PATIENT
  Sex: Male

DRUGS (6)
  1. OXALIPLATIN [Concomitant]
  2. AVASTIN [Suspect]
     Dosage: 9 MONTHS THERAPY
     Route: 065
     Dates: start: 20110101, end: 20111201
  3. FLUOROURACIL [Concomitant]
  4. AVASTIN [Suspect]
     Indication: COLORECTAL CANCER
     Route: 065
     Dates: start: 20090101
  5. AVASTIN [Suspect]
     Route: 065
     Dates: start: 20100101
  6. LEUCOVORIN CALCIUM [Concomitant]

REACTIONS (1)
  - METASTASIS [None]
